FAERS Safety Report 15436659 (Version 13)
Quarter: 2021Q1

REPORT INFORMATION
  Report Type: Spontaneous
  Country: US (occurrence: US)
  Receive Date: 20180927
  Receipt Date: 20210118
  Transmission Date: 20210419
  Serious: Yes (Other)
  Sender: FDA-Public Use
  Company Number: US-PFIZER INC-2018389490

PATIENT
  Age: 60 Year
  Sex: Female
  Weight: 104.26 kg

DRUGS (17)
  1. TRAMADOL. [Concomitant]
     Active Substance: TRAMADOL
     Dosage: 200 MG
  2. AMLODIPINE [Concomitant]
     Active Substance: AMLODIPINE BESYLATE
     Indication: HYPERTENSION
     Dosage: 10 MG, 1X/DAY (AT BEDTIME)
  3. HUMALOG [Concomitant]
     Active Substance: INSULIN LISPRO
     Indication: DIABETES MELLITUS
     Dosage: 20 IU (BEFORE EACH MEAL)
  4. LANTUS [Concomitant]
     Active Substance: INSULIN GLARGINE
     Indication: DIABETES MELLITUS
     Dosage: 60 IU, DAILY (AT NIGHT)
  5. METFORMIN [Concomitant]
     Active Substance: METFORMIN HYDROCHLORIDE
     Indication: DIABETES MELLITUS
     Dosage: 1000 MG, 2X/DAY (TWICE DAILY)
  6. LYRICA [Suspect]
     Active Substance: PREGABALIN
     Indication: FIBROMYALGIA
     Dosage: 300 MG, DAILY (2 100MG CAPSULES AT 2PM, 1 CAPSULE AT 9PM)
  7. TRAMADOL. [Concomitant]
     Active Substance: TRAMADOL
     Dosage: UNK, 4X/DAY
  8. LYRICA [Suspect]
     Active Substance: PREGABALIN
     Indication: SLEEP DISORDER
     Dosage: 600 MG, DAILY (150MG?MORNING, 200MG?AFTERNOON, 250MG?EVENING)
     Dates: start: 2018
  9. TRAMADOL. [Concomitant]
     Active Substance: TRAMADOL
     Dosage: 600 MG, DAILY (600 MG A DAY)
  10. ALEVE [Concomitant]
     Active Substance: NAPROXEN SODIUM
     Indication: HEADACHE
  11. ATORVASTATIN [Concomitant]
     Active Substance: ATORVASTATIN
     Indication: BLOOD CHOLESTEROL INCREASED
     Dosage: 40 MG, 1X/DAY (BEFORE BED)
  12. LISINOPRIL. [Concomitant]
     Active Substance: LISINOPRIL
     Indication: HYPERTENSION
     Dosage: 20 MG, 1X/DAY
  13. TRAMADOL. [Concomitant]
     Active Substance: TRAMADOL
     Dosage: 150 MG, DAILY
  14. LYRICA [Suspect]
     Active Substance: PREGABALIN
     Indication: DIABETIC NEUROPATHY
     Dosage: 600 MG, DAILY (150MG TWICE A DAY AND 100MG THRICE A DAY)
  15. LYRICA [Suspect]
     Active Substance: PREGABALIN
     Indication: PAIN
     Dosage: 600 MG, DAILY (150MG: 1 AT 6AM, 1 AT 9PM; 100MG: 2 AT 2PM, 1 AT 9PM)
     Route: 048
  16. ALEVE [Concomitant]
     Active Substance: NAPROXEN SODIUM
     Indication: PAIN
     Dosage: 220 MG, AS NEEDED
  17. TRAMADOL. [Concomitant]
     Active Substance: TRAMADOL
     Dosage: 50 MG, 3X/DAY
     Route: 048

REACTIONS (23)
  - Sneezing [Recovering/Resolving]
  - Dysphonia [Unknown]
  - Asthma [Unknown]
  - Feeling abnormal [Unknown]
  - Withdrawal syndrome [Recovered/Resolved]
  - Nasopharyngitis [Recovering/Resolving]
  - Tonsillar erythema [Unknown]
  - Cough [Recovering/Resolving]
  - Rhinorrhoea [Unknown]
  - Malaise [Recovering/Resolving]
  - Gait disturbance [Recovered/Resolved]
  - Suicidal ideation [Recovered/Resolved]
  - Limb injury [Unknown]
  - Therapeutic product effect incomplete [Unknown]
  - Oropharyngeal pain [Unknown]
  - Drug dependence [Unknown]
  - Nervousness [Unknown]
  - Chills [Recovered/Resolved]
  - Dysstasia [Unknown]
  - Stress [Unknown]
  - Hyperhidrosis [Unknown]
  - Pain [Recovering/Resolving]
  - Burning sensation [Unknown]

NARRATIVE: CASE EVENT DATE: 2019
